FAERS Safety Report 12666692 (Version 2)
Quarter: 2017Q1

REPORT INFORMATION
  Report Type: Spontaneous
  Country: US (occurrence: US)
  Receive Date: 20160819
  Receipt Date: 20170331
  Transmission Date: 20170428
  Serious: Yes (Other)
  Sender: FDA-Public Use
  Company Number: US-ALEMBIC PHARMACUETICALS LIMITED-2016SCAL000677

PATIENT

DRUGS (2)
  1. CITALOPRAM [Interacting]
     Active Substance: CITALOPRAM HYDROBROMIDE
     Indication: PRODUCT USED FOR UNKNOWN INDICATION
     Dosage: UNK
  2. DULOXETINE DR CAPSULE [Suspect]
     Active Substance: DULOXETINE HYDROCHLORIDE
     Indication: HIP FRACTURE
     Dosage: 20 MG, QD

REACTIONS (1)
  - Inappropriate antidiuretic hormone secretion [Recovered/Resolved]
